FAERS Safety Report 7595047-0 (Version None)
Quarter: 2011Q3

REPORT INFORMATION
  Report Type: 
  Country: None (occurrence: None)
  Receive Date: 20110707
  Receipt Date: 20110621
  Transmission Date: 20111222
  Serious: No
  Sender: FDA-Public Use
  Company Number: US-B.I. PHARMACEUTICALS,INC./RIDGEFIELD-2011-BP-07984BP

PATIENT
  Sex: Male

DRUGS (9)
  1. PRADAXA [Suspect]
     Indication: ATRIAL FIBRILLATION
     Dosage: 300 MG
     Route: 048
     Dates: start: 20101201
  2. SOTALOL HCL [Concomitant]
     Dosage: 240 MG
  3. ASPIRIN [Concomitant]
     Dosage: 81 MG
  4. AMBIEN [Concomitant]
     Dosage: 12.5 MG
  5. LOSARTAN POTASSIUM [Concomitant]
     Indication: HYPERTENSION
  6. PRADAXA [Suspect]
     Indication: ANTICOAGULANT THERAPY
  7. MAXZIDE [Concomitant]
     Indication: HYPERTENSION
     Dosage: 25 MG
     Dates: start: 20110101
  8. LOSARTAN POTASSIUM [Concomitant]
     Indication: BLOOD PRESSURE
     Dates: start: 20110301
  9. VITAMIN D [Concomitant]

REACTIONS (8)
  - DIARRHOEA [None]
  - ABDOMINAL DISCOMFORT [None]
  - DIZZINESS [None]
  - SWELLING FACE [None]
  - TREMOR [None]
  - FAECAL INCONTINENCE [None]
  - TINNITUS [None]
  - NAUSEA [None]
